FAERS Safety Report 8289590-9 (Version None)
Quarter: 2012Q2

REPORT INFORMATION
  Report Type: 
  Country: None (occurrence: None)
  Receive Date: 20120417
  Receipt Date: 20120411
  Transmission Date: 20120825
  Serious: Yes (Death, Other)
  Sender: FDA-Public Use
  Company Number: US-BAYER-2012-035955

PATIENT
  Age: 94 Year
  Sex: Male

DRUGS (1)
  1. NEXAVAR [Suspect]
     Indication: RENAL CELL CARCINOMA

REACTIONS (4)
  - ENTEROCOLITIS INFECTIOUS [None]
  - CEREBROVASCULAR ACCIDENT [None]
  - DEATH [None]
  - RENAL CELL CARCINOMA [None]
